FAERS Safety Report 19157728 (Version 1)
Quarter: 2021Q2

REPORT INFORMATION
  Report Type: Spontaneous
  Country: CA (occurrence: CA)
  Receive Date: 20210420
  Receipt Date: 20210420
  Transmission Date: 20210717
  Serious: Yes (Hospitalization)
  Sender: FDA-Public Use
  Company Number: CA-MYLANLABS-2021M1022904

PATIENT
  Age: 55 Year
  Sex: Male
  Weight: 81 kg

DRUGS (3)
  1. OLANZAPINE. [Concomitant]
     Active Substance: OLANZAPINE
     Dosage: UNK
  2. MYLAN?DIVALPROEX [Suspect]
     Active Substance: DIVALPROEX SODIUM
     Indication: EPILEPSY
     Dosage: 500 MILLIGRAM, BID (2 EVERY 1 DAYS)
     Route: 048
  3. MYLAN?DIVALPROEX [Suspect]
     Active Substance: DIVALPROEX SODIUM
     Dosage: 250 MILLIGRAM, BID (2 EVERY 1 DAYS)
     Route: 048

REACTIONS (2)
  - Febrile neutropenia [Recovered/Resolved]
  - Bicytopenia [Recovered/Resolved]
